FAERS Safety Report 21816385 (Version 1)
Quarter: 2023Q1

REPORT INFORMATION
  Report Type: Spontaneous
  Country: US (occurrence: None)
  Receive Date: 20230103
  Receipt Date: 20230103
  Transmission Date: 20230418
  Serious: Yes (Death)
  Sender: FDA-Public Use
  Company Number: None

PATIENT
  Age: 91 Year
  Sex: Male
  Weight: 98.88 kg

DRUGS (11)
  1. ABIRATERONE ACETATE [Suspect]
     Active Substance: ABIRATERONE ACETATE
     Indication: Prostate cancer
     Dosage: FREQUENCY : DAILY;?
     Route: 048
  2. PREDNISONE [Suspect]
     Active Substance: PREDNISONE
     Indication: Prostate cancer
     Dosage: OTHER FREQUENCY : Q12 HOURS;?
     Route: 048
  3. AMLODIPINE BESYLATE [Concomitant]
  4. DOXAZOSIN MESYLATE [Concomitant]
  5. FLOMAX [Concomitant]
  6. GLIPIZIDE [Concomitant]
  7. LISINOPRIL [Concomitant]
  8. LUPRON DEPT (1-Month) [Concomitant]
  9. POTASSIUM CHLORIDE CRYS ER [Concomitant]
  10. ROSUVASTATIN CALCIUM [Concomitant]
  11. VITAMIN D3 [Concomitant]

REACTIONS (1)
  - Death [None]
